FAERS Safety Report 8280712-2 (Version None)
Quarter: 2012Q2

REPORT INFORMATION
  Report Type: 
  Country: None (occurrence: None)
  Receive Date: 20120412
  Receipt Date: 20111128
  Transmission Date: 20120825
  Serious: No
  Sender: FDA-Public Use
  Company Number: US-ASTRAZENECA-2011SE57728

PATIENT
  Age: 55 Year
  Sex: Female

DRUGS (5)
  1. PANTOPRAZOLE [Concomitant]
  2. NEXIUM [Suspect]
     Route: 048
  3. RANITIDINE [Concomitant]
  4. OMEPRAZOLE [Suspect]
     Route: 048
     Dates: start: 20110201, end: 20110401
  5. DEXILANT [Concomitant]

REACTIONS (4)
  - DYSPEPSIA [None]
  - PAIN [None]
  - DRUG INEFFECTIVE [None]
  - GASTRITIS [None]
